FAERS Safety Report 4351533-8 (Version None)
Quarter: 2004Q2

REPORT INFORMATION
  Report Type: 
  Country: None (occurrence: None)
  Receive Date: 20040428
  Receipt Date: 20040414
  Transmission Date: 20050107
  Serious: Yes (Hospitalization, Other)
  Sender: FDA-Public Use
  Company Number: USA040464915

PATIENT
  Age: 60 Year
  Sex: Female
  Weight: 88 kg

DRUGS (19)
  1. HUMALOG [Suspect]
  2. HUMALOG [Suspect]
     Dosage: 14 U/3 DAY
  3. LISINOPRIL [Concomitant]
  4. AVANDIA [Concomitant]
  5. PLAVIX [Concomitant]
  6. PLENDIL [Concomitant]
  7. FUROSEMIDE [Concomitant]
  8. ZETIA [Concomitant]
  9. KLOR-CON [Concomitant]
  10. PROTONIX [Concomitant]
  11. CALCIUM CARBONATE [Concomitant]
  12. PRANDIN (PRANDIN) [Concomitant]
  13. PLETAL [Concomitant]
  14. ASPIRIN [Concomitant]
  15. LANOXIN [Concomitant]
  16. LIPITOR [Concomitant]
  17. LANTUS [Concomitant]
  18. ADVAIR DISKUS 100/50 [Concomitant]
  19. ATROVENT [Concomitant]

REACTIONS (4)
  - ARTERIAL DISORDER [None]
  - BLOOD GLUCOSE FLUCTUATION [None]
  - MYOCARDIAL INFARCTION [None]
  - VASCULAR BYPASS GRAFT [None]
